FAERS Safety Report 5538048-6 (Version None)
Quarter: 2007Q4

REPORT INFORMATION
  Report Type: 
  Country: None (occurrence: None)
  Receive Date: 20071207
  Receipt Date: 20071116
  Transmission Date: 20080405
  Serious: No
  Sender: FDA-Public Use
  Company Number: US-BOEHRINGER INGELHEIM PHARMACEUTICALS, INC.-2007-BP-24822BP

PATIENT
  Sex: Male

DRUGS (3)
  1. FLOMAX [Suspect]
     Indication: BENIGN PROSTATIC HYPERPLASIA
     Route: 048
     Dates: start: 20071101
  2. GENERIC AVODART [Concomitant]
     Indication: BENIGN PROSTATIC HYPERPLASIA
  3. PEPCID [Concomitant]
     Indication: PROPHYLAXIS

REACTIONS (2)
  - DYSPEPSIA [None]
  - EJACULATION FAILURE [None]
